FAERS Safety Report 5272391-3 (Version None)
Quarter: 2007Q1

REPORT INFORMATION
  Report Type: 
  Country: None (occurrence: None)
  Receive Date: 20070320
  Receipt Date: 20070320
  Transmission Date: 20070707
  Serious: Yes (Hospitalization)
  Sender: FDA-Public Use
  Company Number: None

PATIENT
  Age: 58 Year
  Sex: Male
  Weight: 85.7 kg

DRUGS (1)
  1. LINEZOLID [Suspect]
     Indication: INFECTION
     Dosage: 600 MG EVERY 12 HOURS PO
     Route: 048
     Dates: start: 20070106, end: 20070214

REACTIONS (3)
  - ANAEMIA [None]
  - GASTRITIS [None]
  - THROMBOCYTOPENIA [None]
